FAERS Safety Report 9308056 (Version 1)
Quarter: 2013Q2

REPORT INFORMATION
  Report Type: Spontaneous
  Country: US (occurrence: US)
  Receive Date: 20130524
  Receipt Date: 20130524
  Transmission Date: 20140414
  Serious: Yes (Hospitalization)
  Sender: FDA-Public Use
  Company Number: US-BAYER-2013-064524

PATIENT
  Age: 44 Year
  Sex: Female

DRUGS (6)
  1. YASMIN [Suspect]
     Indication: ENDOMETRIOSIS
  2. PAXIL [Concomitant]
  3. DARVOCET [Concomitant]
  4. ALLEGRA-D [Concomitant]
  5. IMITREX [Concomitant]
  6. COMPAZINE [Concomitant]

REACTIONS (1)
  - Deep vein thrombosis [Recovering/Resolving]
